FAERS Safety Report 20133273 (Version 1)
Quarter: 2021Q4

REPORT INFORMATION
  Report Type: Report from Study
  Country: HN (occurrence: HN)
  Receive Date: 20211201
  Receipt Date: 20211201
  Transmission Date: 20220303
  Serious: Yes (Other)
  Sender: FDA-Public Use
  Company Number: HN-NOVARTISPH-NVSC2021HN270659

PATIENT
  Age: 74 Year
  Sex: Male

DRUGS (1)
  1. EXFORGE HCT [Suspect]
     Active Substance: AMLODIPINE BESYLATE\HYDROCHLOROTHIAZIDE\VALSARTAN
     Indication: Product used for unknown indication
     Dosage: 1 DF (AMLODIPINE: 10 MG, HYDROCHLOROTHIAZIDE: 25 MG, VALSARTAN: 160 MG), STARTED APPROXIMATELY 6 YEA
     Route: 065

REACTIONS (1)
  - Angina unstable [Unknown]
